FAERS Safety Report 9356329 (Version 1)
Quarter: 2013Q2

REPORT INFORMATION
  Report Type: Spontaneous
  Country: US (occurrence: None)
  Receive Date: 20130614
  Receipt Date: 20130614
  Transmission Date: 20140414
  Serious: Yes (Other)
  Sender: FDA-Public Use
  Company Number: 201305047

PATIENT
  Age: 64 Year
  Sex: Male

DRUGS (4)
  1. TESTIM [Suspect]
     Indication: BLOOD TESTOSTERONE DECREASED
     Route: 062
     Dates: start: 201301, end: 201302
  2. ANDROGEL [Suspect]
     Indication: BLOOD TESTOSTERONE DECREASED
     Dosage: 2 PUMPS
     Dates: start: 20130208, end: 20130217
  3. LIPITOR (ATORVASTATIN CALCIUM) [Concomitant]
  4. TEMEZEPAM (TEMAZEPAM) [Concomitant]

REACTIONS (2)
  - Renal failure chronic [None]
  - Rhabdomyolysis [None]
